FAERS Safety Report 6865195-9 (Version None)
Quarter: 2010Q3

REPORT INFORMATION
  Report Type: 
  Country: None (occurrence: None)
  Receive Date: 20100721
  Receipt Date: 20080419
  Transmission Date: 20110219
  Serious: Yes (Other)
  Sender: FDA-Public Use
  Company Number: US-PFIZER INC-2008032479

PATIENT
  Sex: Female
  Weight: 66.7 kg

DRUGS (12)
  1. CHANTIX [Suspect]
     Indication: SMOKING CESSATION THERAPY
     Dates: start: 20080101, end: 20080316
  2. DARVOCET [Concomitant]
  3. PRILOSEC [Concomitant]
  4. TYLENOL [Concomitant]
  5. ACETYLSALICYLIC ACID [Concomitant]
  6. LISINOPRIL [Concomitant]
  7. ATENOLOL [Concomitant]
  8. CRESTOR [Concomitant]
  9. ALPRAZOLAM [Concomitant]
  10. GEMFIBROZIL [Concomitant]
  11. PLAVIX [Concomitant]
  12. ALL OTHER THERAPEUTIC PRODUCTS [Concomitant]
     Indication: ARTHRITIS

REACTIONS (10)
  - BURNING SENSATION [None]
  - CHEST PAIN [None]
  - DYSGEUSIA [None]
  - EYE PAIN [None]
  - FATIGUE [None]
  - HOT FLUSH [None]
  - INSOMNIA [None]
  - PARAESTHESIA [None]
  - PAROSMIA [None]
  - RASH [None]
